FAERS Safety Report 7233549-7 (Version None)
Quarter: 2011Q1

REPORT INFORMATION
  Report Type: 
  Country: None (occurrence: None)
  Receive Date: 20110119
  Receipt Date: 20100510
  Transmission Date: 20110831
  Serious: No
  Sender: FDA-Public Use
  Company Number: US-TEVA-234846USA

PATIENT
  Sex: Female

DRUGS (6)
  1. FUROSEMIDE [Concomitant]
  2. ACETYLSALICYLIC ACID [Concomitant]
     Dosage: QD (DAILY)
     Route: 048
  3. LABETALOL [Concomitant]
  4. COPAXONE [Suspect]
     Indication: MULTIPLE SCLEROSIS
     Dosage: QD (DAILY)
     Route: 058
     Dates: start: 20081101, end: 20100507
  5. SIMVASTATIN [Concomitant]
  6. LISINOPRIL [Concomitant]

REACTIONS (1)
  - FEELING JITTERY [None]
